FAERS Safety Report 16172374 (Version 2)
Quarter: 2019Q2

REPORT INFORMATION
  Report Type: Spontaneous
  Country: TR (occurrence: TR)
  Receive Date: 20190409
  Receipt Date: 20190415
  Transmission Date: 20190711
  Serious: Yes (Death, Hospitalization, Other)
  Sender: FDA-Public Use
  Company Number: TR-AMGEN-TURSP2019052138

PATIENT
  Age: 60 Year
  Sex: Female
  Weight: 48.5 kg

DRUGS (5)
  1. ARANESP [Suspect]
     Active Substance: DARBEPOETIN ALFA
     Dosage: 10 MICROGRAM
     Route: 058
     Dates: start: 20181001, end: 20181003
  2. RENAGEL [SEVELAMER CARBONATE] [Concomitant]
     Indication: BLOOD PHOSPHORUS ABNORMAL
     Dosage: 800 MICROGRAM
     Dates: start: 20140702, end: 20181003
  3. ARANESP [Suspect]
     Active Substance: DARBEPOETIN ALFA
     Indication: NEPHROGENIC ANAEMIA
     Dosage: 30 MICROGRAM
     Route: 058
     Dates: start: 20180803, end: 20180928
  4. OSTRIOL [Concomitant]
     Active Substance: CALCITRIOL
     Indication: VITAMIN D DEFICIENCY
     Dosage: 1 MICROGRAM, QWK
     Dates: start: 20180901, end: 20181003
  5. CARNITENE [CARNITINE HYDROCHLORIDE] [Concomitant]
     Indication: CARNITINE DEFICIENCY
     Dosage: 1 GRAM, QWK
     Dates: start: 20140702, end: 20181003

REACTIONS (2)
  - Hypotension [Unknown]
  - Myocardial infarction [Fatal]

NARRATIVE: CASE EVENT DATE: 201809
